FAERS Safety Report 4948450-9 (Version None)
Quarter: 2006Q1

REPORT INFORMATION
  Report Type: 
  Country: None (occurrence: None)
  Receive Date: 20060314
  Receipt Date: 20060307
  Transmission Date: 20060701
  Serious: Yes (Death)
  Sender: FDA-Public Use
  Company Number: 2005-135725-NL

PATIENT
  Age: 14 Year
  Sex: Female

DRUGS (7)
  1. ROCURONIUM BROMIDE [Suspect]
     Indication: GENERAL ANAESTHESIA
  2. PROPOFOL [Suspect]
     Indication: GENERAL ANAESTHESIA
  3. FENTANYL [Concomitant]
  4. MIDAZOLAM [Concomitant]
  5. SUCCINYLCHOLINE CHLORIDE [Concomitant]
  6. HEPARIN [Concomitant]
  7. PROPRANOLOL [Concomitant]

REACTIONS (4)
  - ANAPHYLACTOID REACTION [None]
  - CARDIAC ARREST [None]
  - RESPIRATORY ARREST [None]
  - SWELLING FACE [None]
